FAERS Safety Report 25154917 (Version 1)
Quarter: 2025Q2

REPORT INFORMATION
  Report Type: Spontaneous
  Country: US (occurrence: None)
  Receive Date: 20250402
  Receipt Date: 20250402
  Transmission Date: 20250717
  Serious: Yes (Hospitalization)
  Sender: FDA-CTU
  Company Number: None

PATIENT
  Age: 73 Year
  Sex: Male

DRUGS (1)
  1. POMALYST [Suspect]
     Active Substance: POMALIDOMIDE
     Indication: Plasma cell myeloma
     Dosage: FREQUENCY : DAILY;?
     Route: 048
     Dates: start: 20240513

REACTIONS (5)
  - Palpitations [None]
  - Acute kidney injury [None]
  - Hyperlipidaemia [None]
  - Acute myocardial infarction [None]
  - Atrioventricular block first degree [None]

NARRATIVE: CASE EVENT DATE: 20250314
